FAERS Safety Report 15375479 (Version 2)
Quarter: 2018Q3

REPORT INFORMATION
  Report Type: Report from Study
  Country: US (occurrence: US)
  Receive Date: 20180912
  Receipt Date: 20180925
  Transmission Date: 20181010
  Serious: Yes (Hospitalization, Other)
  Sender: FDA-Public Use
  Company Number: US-SHIRE-US201834356

PATIENT
  Age: 78 Year
  Sex: Male
  Weight: 76.19 kg

DRUGS (2)
  1. GATTEX [Suspect]
     Active Substance: TEDUGLUTIDE\WATER
     Dosage: 1.9 MG, 1X/DAY:QD
     Route: 058
     Dates: start: 20171102, end: 20180913
  2. GATTEX [Suspect]
     Active Substance: TEDUGLUTIDE\WATER
     Indication: SHORT-BOWEL SYNDROME
     Dosage: 0.19 ML, 1X/DAY:QD
     Route: 058
     Dates: start: 20171113

REACTIONS (3)
  - Drug ineffective [Unknown]
  - Small intestinal obstruction [Not Recovered/Not Resolved]
  - Inappropriate schedule of drug administration [Unknown]

NARRATIVE: CASE EVENT DATE: 20180831
